FAERS Safety Report 18922791 (Version 1)
Quarter: 2021Q1

REPORT INFORMATION
  Report Type: Spontaneous
  Country: CA (occurrence: CA)
  Receive Date: 20210222
  Receipt Date: 20210222
  Transmission Date: 20210420
  Serious: Yes (Hospitalization, Other)
  Sender: FDA-Public Use
  Company Number: CA-UNIQUE PHARMACEUTICAL LABORATORIES-20210200005

PATIENT
  Sex: Male

DRUGS (2)
  1. CETIRIZINE HYDROCHLORIDE UNSPECIFIED [Suspect]
     Active Substance: CETIRIZINE HYDROCHLORIDE
     Indication: ERYTHEMA MULTIFORME
     Dosage: 20 MILLIGRAM, ONE TIME PER DAY
  2. CETIRIZINE HYDROCHLORIDE UNSPECIFIED [Suspect]
     Active Substance: CETIRIZINE HYDROCHLORIDE
     Indication: PRURITUS
     Dosage: 20 MILLIGRAM, ONE TIME PER DAY

REACTIONS (2)
  - Off label use [Unknown]
  - Substance-induced psychotic disorder [Recovered/Resolved]
